FAERS Safety Report 5196620-X (Version None)
Quarter: 2007Q1

REPORT INFORMATION
  Report Type: 
  Country: None (occurrence: None)
  Receive Date: 20070103
  Receipt Date: 20061222
  Transmission Date: 20070707
  Serious: Yes (Hospitalization, Other)
  Sender: FDA-Public Use
  Company Number: PHHO2006JP21909

PATIENT
  Age: 73 Year
  Sex: Female
  Weight: 55 kg

DRUGS (3)
  1. DIOVAN [Suspect]
     Indication: HYPERTENSION
     Dosage: 80 MG, QD
     Route: 048
     Dates: start: 20030425, end: 20050318
  2. NORVASC [Suspect]
     Indication: HYPERTENSION
  3. THYRADIN [Suspect]
     Indication: HYPOTHYROIDISM

REACTIONS (4)
  - CEREBRAL INFARCTION [None]
  - DIZZINESS [None]
  - DYSLALIA [None]
  - GAIT DISTURBANCE [None]
